FAERS Safety Report 10359646 (Version 1)
Quarter: 2014Q3

REPORT INFORMATION
  Report Type: Spontaneous
  Country: US (occurrence: None)
  Receive Date: 20140731
  Receipt Date: 20140731
  Transmission Date: 20150326
  Serious: Yes (Hospitalization)
  Sender: FDA-Public Use
  Company Number: None

PATIENT
  Age: 69 Year
  Sex: Male

DRUGS (4)
  1. EXJADE [Suspect]
     Active Substance: DEFERASIROX
     Indication: LYMPHATIC DISORDER
     Route: 048
     Dates: start: 20140625
  2. EXJADE [Suspect]
     Active Substance: DEFERASIROX
     Indication: LYMPHATIC DISORDER
     Route: 048
     Dates: start: 20140625
  3. EXJADE [Suspect]
     Active Substance: DEFERASIROX
     Indication: BLOOD DISORDER
     Route: 048
     Dates: start: 20140625
  4. EXJADE [Suspect]
     Active Substance: DEFERASIROX
     Indication: BLOOD DISORDER
     Route: 048
     Dates: start: 20140625

REACTIONS (1)
  - Aphonia [None]
